FAERS Safety Report 8614202 (Version 2)
Quarter: 2012Q4

REPORT INFORMATION
  Report Type: Report from Study
  Country: US (occurrence: US)
  Receive Date: 20120614
  Receipt Date: 20120921
  Transmission Date: 20130627
  Serious: Yes (Hospitalization)
  Sender: FDA-Public Use
  Company Number: US-UCBSA-042420

PATIENT
  Age: 58 Year
  Sex: Male
  Weight: 70 kg

DRUGS (18)
  1. CERTOLIZUMAB PEGOL [Suspect]
     Indication: RHEUMATOID ARTHRITIS
     Dosage: DOSE : 200 MG/ML
     Route: 058
     Dates: start: 20110509, end: 20110927
  2. ADVAIR DISKUS [Concomitant]
     Indication: CHRONIC OBSTRUCTIVE PULMONARY DISEASE
     Dosage: DOSAGE PER INTAKE : 250/50 MG
     Route: 055
     Dates: start: 2002
  3. ADVAIR DISKUS [Concomitant]
     Indication: ASTHMA
     Dosage: DOSAGE PER INTAKE : 250/50 MG
     Route: 055
     Dates: start: 2002
  4. ATENOLOL AND  CHLORTHALIDONE [Concomitant]
     Indication: HYPERTENSION
     Dosage: DOSE PER INTAKE : 100/25 MG
     Route: 048
     Dates: start: 2000
  5. CEREBREX [Concomitant]
     Indication: RHEUMATOID ARTHRITIS
     Route: 048
     Dates: start: 200112
  6. FOLIC ACID [Concomitant]
     Indication: SUPPLEMENTATION THERAPY
     Route: 048
     Dates: start: 200112
  7. LEXAPRO [Concomitant]
     Indication: DEPRESSION
     Route: 048
     Dates: start: 2003
  8. LIPITOR [Concomitant]
     Indication: DYSLIPIDAEMIA
     Route: 048
     Dates: start: 2000
  9. LYRICA [Concomitant]
     Indication: NEURALGIA
     Route: 048
     Dates: start: 2002
  10. METHOTREXATE [Concomitant]
     Indication: RHEUMATOID ARTHRITIS
     Dosage: 2.5 X 7
     Route: 048
     Dates: start: 201010
  11. PROPANOL [Concomitant]
     Indication: HYPERTENSION
     Dosage: AS NESSESARY
     Route: 048
     Dates: start: 2008
  12. SPIRIVA INHALER [Concomitant]
     Indication: CHRONIC OBSTRUCTIVE PULMONARY DISEASE
     Route: 055
     Dates: start: 2002
  13. TRAMADOL [Concomitant]
     Indication: BACK PAIN
     Route: 048
     Dates: start: 2002
  14. NICODERM [Concomitant]
     Indication: TOBACCO USER
     Dates: start: 20101225
  15. SEROQUEL [Concomitant]
     Indication: DISSOCIATIVE IDENTITY DISORDER
     Route: 048
     Dates: start: 2003
  16. SEROQUEL [Concomitant]
     Indication: DISSOCIATIVE IDENTITY DISORDER
     Route: 048
     Dates: start: 2003
  17. TRAMADOL [Concomitant]
     Indication: BACK PAIN
     Dates: start: 200212
  18. ATENOLOL AND  CHLORTHALIDONE [Concomitant]
     Indication: HYPERTENSION
     Dosage: DOSE PER INTAKE : 100/25 MG
     Route: 048
     Dates: start: 2000

REACTIONS (1)
  - Alcohol poisoning [Recovered/Resolved]
